FAERS Safety Report 5421586-4 (Version None)
Quarter: 2007Q3

REPORT INFORMATION
  Report Type: 
  Country: None (occurrence: None)
  Receive Date: 20070726
  Receipt Date: 20070417
  Transmission Date: 20080115
  Serious: Yes (Hospitalization)
  Sender: FDA-Public Use
  Company Number: US200704003732

PATIENT
  Age: 67 Year
  Sex: Female

DRUGS (2)
  1. FORTEO [Suspect]
     Indication: OSTEOPOROSIS
     Dates: start: 20060417
  2. FORTEO PEN (TERIPARATIDE) PEN, DISPOSABLE [Concomitant]

REACTIONS (1)
  - GASTROINTESTINAL DISORDER [None]
